FAERS Safety Report 8589609-1 (Version None)
Quarter: 2012Q3

REPORT INFORMATION
  Report Type: 
  Country: None (occurrence: None)
  Receive Date: 20120813
  Receipt Date: 20120809
  Transmission Date: 20120928
  Serious: Yes (Disabling)
  Sender: FDA-Public Use
  Company Number: US-ROCHE-1083147

PATIENT
  Sex: Female
  Weight: 65.83 kg

DRUGS (7)
  1. SINGULAIR [Concomitant]
     Indication: ASTHMA
     Route: 048
     Dates: start: 20100524
  2. XOLAIR [Suspect]
     Route: 058
     Dates: start: 20111017
  3. FLUNASE [Concomitant]
     Indication: RHINITIS
     Dates: start: 20120418
  4. XOLAIR [Suspect]
     Indication: ASTHMA
     Route: 058
     Dates: start: 20110620, end: 20110720
  5. PROAIR HFA [Concomitant]
     Indication: ASTHMA
     Dates: start: 20100724
  6. ADVAIR DISKUS 100/50 [Concomitant]
     Indication: ASTHMA
     Dosage: DOSE: 250/54 MCG
     Route: 011
     Dates: start: 20120525
  7. PATANASE [Concomitant]
     Indication: RHINITIS
     Dates: start: 20100529

REACTIONS (1)
  - DIARRHOEA [None]
